FAERS Safety Report 8763833 (Version 3)
Quarter: 2014Q1

REPORT INFORMATION
  Report Type: Spontaneous
  Country: US (occurrence: US)
  Receive Date: 20120831
  Receipt Date: 20140129
  Transmission Date: 20141002
  Serious: Yes (Life-Threatening, Hospitalization)
  Sender: FDA-Public Use
  Company Number: US-BAYER-2012-087952

PATIENT
  Age: 16 Year
  Sex: Female
  Weight: 49.89 kg

DRUGS (9)
  1. YAZ [Suspect]
     Indication: CONTRACEPTION
     Dosage: UNK
  2. YAZ [Suspect]
     Indication: PREMENSTRUAL SYNDROME
  3. YAZ [Suspect]
     Indication: AFFECTIVE DISORDER
  4. YAZ [Suspect]
     Indication: MENORRHAGIA
  5. YASMIN [Suspect]
  6. DEXAMFETAMINE [Concomitant]
     Indication: ATTENTION DEFICIT/HYPERACTIVITY DISORDER
     Dosage: UNK
     Dates: start: 201009
  7. PRILOSEC [Concomitant]
     Indication: ABDOMINAL PAIN
     Dosage: UNK
     Dates: start: 20120330, end: 20120418
  8. MOTRIN [Concomitant]
     Indication: ABDOMINAL PAIN UPPER
  9. ZOFRAN [Concomitant]

REACTIONS (11)
  - Gallbladder disorder [None]
  - Cholecystitis [None]
  - Abdominal pain [None]
  - Injury [None]
  - Pain [None]
  - Anxiety [None]
  - Anhedonia [None]
  - Fear [None]
  - General physical health deterioration [None]
  - Quality of life decreased [None]
  - Deformity [None]
